FAERS Safety Report 14665295 (Version 1)
Quarter: 2018Q1

REPORT INFORMATION
  Report Type: Spontaneous
  Country: GB (occurrence: GB)
  Receive Date: 20180321
  Receipt Date: 20180321
  Transmission Date: 20180509
  Serious: Yes (Other)
  Sender: FDA-Public Use
  Company Number: GB-JNJFOC-20180322420

PATIENT
  Age: 71 Year
  Sex: Male

DRUGS (2)
  1. IBRUTINIB [Suspect]
     Active Substance: IBRUTINIB
     Indication: MANTLE CELL LYMPHOMA RECURRENT
     Route: 048
     Dates: start: 20171127
  2. RITUXIMAB. [Concomitant]
     Active Substance: RITUXIMAB
     Route: 065

REACTIONS (7)
  - Ocular hyperaemia [Not Recovered/Not Resolved]
  - Eye pain [Not Recovered/Not Resolved]
  - Miosis [Not Recovered/Not Resolved]
  - Headache [Recovered/Resolved]
  - Vitreous floaters [Not Recovered/Not Resolved]
  - Iridocyclitis [Not Recovered/Not Resolved]
  - Accommodation disorder [Not Recovered/Not Resolved]

NARRATIVE: CASE EVENT DATE: 20171201
